FAERS Safety Report 24120829 (Version 1)
Quarter: 2024Q3

REPORT INFORMATION
  Report Type: Spontaneous
  Country: US (occurrence: None)
  Receive Date: 20240721
  Receipt Date: 20240721
  Transmission Date: 20241017
  Serious: Yes (Hospitalization)
  Sender: Public
  Company Number: None

PATIENT
  Age: 73 Year
  Sex: Female
  Weight: 59.7 kg

DRUGS (11)
  1. SITAGLIPTIN [Suspect]
     Active Substance: SITAGLIPTIN
     Indication: Type 2 diabetes mellitus
     Dosage: FREQUENCY : DAILY;?
     Route: 048
     Dates: end: 20240715
  2. ALPRAZOLAM [Concomitant]
  3. ATENOLOL [Concomitant]
  4. CITALOPRAM [Concomitant]
  5. FOLIC ACID [Concomitant]
     Active Substance: FOLIC ACID
  6. GLIMEPIRIDE [Concomitant]
     Active Substance: GLIMEPIRIDE
  7. LEVOTHYROXINE [Concomitant]
  8. LISINOPRIL [Concomitant]
  9. METFORMIN [Concomitant]
  10. METHOTREXATE [Concomitant]
  11. Simvastati [Concomitant]

REACTIONS (11)
  - Vomiting [None]
  - Diarrhoea [None]
  - Abdominal pain [None]
  - Asthenia [None]
  - Nausea [None]
  - Hypophagia [None]
  - Pancreatitis necrotising [None]
  - Peripancreatic fluid collection [None]
  - Intra-abdominal fluid collection [None]
  - Pelvic fluid collection [None]
  - Pancreatic duct dilatation [None]

NARRATIVE: CASE EVENT DATE: 20240712
